FAERS Safety Report 26148643 (Version 1)
Quarter: 2025Q4

REPORT INFORMATION
  Report Type: Spontaneous
  Country: US (occurrence: US)
  Receive Date: 20251212
  Receipt Date: 20251212
  Transmission Date: 20260117
  Serious: No
  Sender: SUNOVION
  Company Number: US-SMPA-2025SPA015390

PATIENT
  Age: 83 Year
  Sex: Female

DRUGS (2)
  1. GEMTESA [Suspect]
     Active Substance: VIBEGRON
     Indication: Urinary tract infection
     Dosage: 75 MG, QD (TWO PILLS)
     Route: 048
     Dates: start: 202509, end: 2025
  2. GEMTESA [Suspect]
     Active Substance: VIBEGRON
     Indication: Bladder disorder

REACTIONS (2)
  - Urticaria [Not Recovered/Not Resolved]
  - Product use in unapproved indication [Unknown]
